FAERS Safety Report 6286063-X (Version None)
Quarter: 2009Q3

REPORT INFORMATION
  Report Type: 
  Country: None (occurrence: None)
  Receive Date: 20090728
  Receipt Date: 20090715
  Transmission Date: 20100115
  Serious: Yes (Other)
  Sender: FDA-Public Use
  Company Number: US-NAPPMUNDI-DEU-2009-0005401

PATIENT
  Age: 70 Year
  Sex: Female

DRUGS (4)
  1. HYDROMORPHONE HCL [Suspect]
     Indication: CANCER PAIN
     Dosage: UNK
  2. HYDROMORPHONE HCL [Suspect]
     Dosage: 0.45 MG, DAILY
     Route: 037
  3. BUPIVACAINE [Suspect]
     Indication: CANCER PAIN
     Dosage: UNK
  4. BUPIVACAINE [Suspect]
     Dosage: 2.7 MG, DAILY
     Route: 037

REACTIONS (1)
  - BRAIN STEM HAEMORRHAGE [None]
